FAERS Safety Report 7930766-5 (Version None)
Quarter: 2011Q4

REPORT INFORMATION
  Report Type: 
  Country: None (occurrence: None)
  Receive Date: 20111121
  Receipt Date: 20111114
  Transmission Date: 20120403
  Serious: Yes (Hospitalization)
  Sender: FDA-Public Use
  Company Number: US-GLAXOSMITHKLINE-A0953028A

PATIENT
  Age: 64 Year
  Sex: Female

DRUGS (11)
  1. ADVAIR DISKUS 100/50 [Suspect]
     Indication: LUNG DISORDER
     Dosage: 1PUFF PER DAY
     Route: 055
  2. THEOPHYLLINE [Concomitant]
  3. QUINAPRIL [Concomitant]
  4. PAXIL [Suspect]
     Indication: DEPRESSION
     Route: 048
  5. METFORMIN HCL [Concomitant]
  6. VERAPAMIL [Concomitant]
  7. ALBUTEROL [Concomitant]
  8. FUROSEMIDE [Concomitant]
  9. CELEBREX [Concomitant]
  10. AMBIEN [Concomitant]
  11. SINGULAIR [Concomitant]

REACTIONS (1)
  - RESPIRATORY FAILURE [None]
